FAERS Safety Report 9541852 (Version 4)
Quarter: 2014Q2

REPORT INFORMATION
  Report Type: Report from Study
  Country: BR (occurrence: BR)
  Receive Date: 20130923
  Receipt Date: 20140618
  Transmission Date: 20141212
  Serious: Yes (Hospitalization)
  Sender: FDA-Public Use
  Company Number: PHHO2011BR14764

PATIENT
  Age: 42 Year
  Sex: Male
  Weight: 89 kg

DRUGS (9)
  1. SOM230 [Suspect]
     Indication: CARCINOID SYNDROME
     Dosage: 60 MG, UNK
     Route: 030
     Dates: start: 20110727, end: 20110822
  2. LEVOTHYROXINE [Concomitant]
     Indication: HYPOPITUITARISM
     Dosage: 1 DF, UNK (175/200 UG)
  3. CIMETIDINE [Concomitant]
     Indication: ABDOMINAL PAIN UPPER
     Dosage: UNK
     Dates: start: 20110708, end: 20110718
  4. PARACETAMOL [Concomitant]
     Dosage: UNK
     Dates: start: 20110708, end: 20110712
  5. PREDNISONE [Concomitant]
     Indication: HYPOPITUITARISM
     Dosage: 2.5 MG, QD
     Dates: end: 20110824
  6. PREDNISONE [Concomitant]
     Indication: ADRENAL INSUFFICIENCY
     Dosage: UNK
     Dates: start: 20110825
  7. SIMVASTATIN [Concomitant]
     Indication: DYSLIPIDAEMIA
     Dosage: 10 MG, UNK
     Route: 030
  8. VASOPRESSIN [Concomitant]
     Indication: HYPOPITUITARISM
     Dosage: 0.05 ML, BID
     Route: 058
     Dates: start: 201101
  9. HYDROCORTISONE [Concomitant]
     Dosage: 100 MG 8/8 H
     Route: 042

REACTIONS (2)
  - Hyperglycaemia [Recovered/Resolved]
  - Confusional state [Recovered/Resolved]
